FAERS Safety Report 9115139 (Version 1)
Quarter: 2013Q1

REPORT INFORMATION
  Report Type: Spontaneous
  Country: US (occurrence: US)
  Receive Date: 20130225
  Receipt Date: 20130225
  Transmission Date: 20140127
  Serious: No
  Sender: FDA-Public Use
  Company Number: US-PFIZER INC-2013068266

PATIENT
  Sex: Male

DRUGS (1)
  1. ADVIL [Suspect]
     Indication: EPIDIDYMITIS
     Dosage: 2 DF, EVERY 4-6 HOURS

REACTIONS (1)
  - Penile swelling [Unknown]
